FAERS Safety Report 15284806 (Version 2)
Quarter: 2019Q1

REPORT INFORMATION
  Report Type: Spontaneous
  Country: US (occurrence: US)
  Receive Date: 20180816
  Receipt Date: 20190327
  Transmission Date: 20190417
  Serious: Yes (Hospitalization, Other)
  Sender: FDA-Public Use
  Company Number: US-ELEFSEE PHARMACEUTICALS INTERNATIONAL-US-2018WTD001176

PATIENT
  Age: 48 Year
  Sex: Female
  Weight: 250 kg

DRUGS (15)
  1. LORAZEPAM. [Concomitant]
     Active Substance: LORAZEPAM
     Indication: ANXIETY
     Dosage: ONE TABLET AT NIGHT
     Route: 065
  2. LAZANDA [Suspect]
     Active Substance: FENTANYL CITRATE
     Indication: NEURITIS
  3. LAZANDA [Suspect]
     Active Substance: FENTANYL CITRATE
     Indication: FIBROMYALGIA
     Dosage: 100 ?G, UP TO FOUR TIMES A DAY, ONE PUFF ONE SPRAY ONE NOSTRIL PER EPISODE UP TO FOUR TIMES
     Route: 045
     Dates: start: 201703, end: 201710
  4. LAZANDA [Suspect]
     Active Substance: FENTANYL CITRATE
     Indication: COMPLEX REGIONAL PAIN SYNDROME
  5. EFFEXOR [Concomitant]
     Active Substance: VENLAFAXINE HYDROCHLORIDE
     Indication: DEPRESSION
     Dosage: TWO CAPSULES DAILY
     Route: 048
  6. LAZANDA [Suspect]
     Active Substance: FENTANYL CITRATE
     Indication: PAIN
     Dosage: 400 ?G, UP TO EIGHT TIMES A DAY, ONE PUFF ONE SPRAY ONE NOSTRIL PER EPISODE UP TO FOUR TIMES
     Route: 045
     Dates: start: 2017
  7. ZYRTEC [Concomitant]
     Active Substance: CETIRIZINE HYDROCHLORIDE
     Indication: HYPERSENSITIVITY
     Dosage: ONE TABLET AT NIGHT
     Route: 048
     Dates: start: 201801
  8. LAZANDA [Suspect]
     Active Substance: FENTANYL CITRATE
     Indication: INTERSTITIAL LUNG DISEASE
  9. ZOFRAN [Concomitant]
     Active Substance: ONDANSETRON HYDROCHLORIDE
     Indication: NAUSEA
     Dosage: ONE TABLET TWICE DAILY
     Route: 048
     Dates: start: 2009
  10. OXYBUTYNIN. [Concomitant]
     Active Substance: OXYBUTYNIN CHLORIDE
     Indication: HYPERHIDROSIS
     Dosage: 10 MG, QD
     Route: 048
     Dates: start: 201808
  11. LAZANDA [Suspect]
     Active Substance: FENTANYL CITRATE
     Indication: PAIN
     Dosage: 400 ?G, QID
     Route: 045
     Dates: start: 20180727
  12. LAZANDA [Suspect]
     Active Substance: FENTANYL CITRATE
     Indication: SPINAL FUSION SURGERY
  13. NORCO [Concomitant]
     Active Substance: ACETAMINOPHEN\HYDROCODONE BITARTRATE
     Indication: PAIN
     Dosage: ONE TABLET AS NEEDED OR AT LEAST FOUR TIMES A DAY
     Route: 048
     Dates: start: 2013
  14. LAZANDA [Suspect]
     Active Substance: FENTANYL CITRATE
     Indication: NEURALGIA
  15. LAZANDA [Suspect]
     Active Substance: FENTANYL CITRATE
     Indication: OSTEOARTHRITIS

REACTIONS (6)
  - Drug withdrawal syndrome [Recovered/Resolved]
  - Vomiting [Recovered/Resolved]
  - Suicidal ideation [Unknown]
  - Malaise [Unknown]
  - Fear [Unknown]
  - Pain [Unknown]

NARRATIVE: CASE EVENT DATE: 20180724
